FAERS Safety Report 20387205 (Version 2)
Quarter: 2022Q2

REPORT INFORMATION
  Report Type: Other
  Country: FR (occurrence: FR)
  Receive Date: 20220127
  Receipt Date: 20220419
  Transmission Date: 20220721
  Serious: Yes (Life-Threatening, Hospitalization, Other)
  Sender: FDA-Public Use
  Company Number: FR-Santen Ltd-2021-FRA-006880

PATIENT
  Age: 35 Year
  Sex: Female

DRUGS (1)
  1. CYCLOSPORINE [Suspect]
     Active Substance: CYCLOSPORINE
     Indication: Product used for unknown indication
     Dosage: UNK
     Route: 047

REACTIONS (2)
  - Carcinoma in situ [Unknown]
  - Malignant neoplasm of conjunctiva [Unknown]

NARRATIVE: CASE EVENT DATE: 20140418
